FAERS Safety Report 15298433 (Version 2)
Quarter: 2018Q4

REPORT INFORMATION
  Report Type: Spontaneous
  Country: US (occurrence: US)
  Receive Date: 20180820
  Receipt Date: 20181016
  Transmission Date: 20190204
  Serious: Yes (Other)
  Sender: FDA-Public Use
  Company Number: US-DRREDDYS-USA/USA/18/0098692

PATIENT
  Age: 26 Year
  Sex: Male

DRUGS (1)
  1. LEVOFLOXACIN TABLETS [Suspect]
     Active Substance: LEVOFLOXACIN
     Indication: TONSILLITIS STREPTOCOCCAL
     Route: 048

REACTIONS (2)
  - Arthralgia [Unknown]
  - Guttate psoriasis [Recovered/Resolved]
